FAERS Safety Report 25239954 (Version 1)
Quarter: 2025Q2

REPORT INFORMATION
  Report Type: Spontaneous
  Country: US (occurrence: US)
  Receive Date: 20250425
  Receipt Date: 20250425
  Transmission Date: 20250717
  Serious: No
  Sender: INCYTE
  Company Number: US-EVENT-002439

PATIENT
  Age: 62 Year

DRUGS (1)
  1. JAKAFI [Suspect]
     Active Substance: RUXOLITINIB
     Indication: Leukaemia
     Dosage: 20 MILLIGRAM, BID

REACTIONS (3)
  - Vision blurred [Unknown]
  - Vitreous floaters [Unknown]
  - Off label use [Unknown]
